FAERS Safety Report 8373073-1 (Version None)
Quarter: 2012Q2

REPORT INFORMATION
  Report Type: 
  Country: None (occurrence: None)
  Receive Date: 20120521
  Receipt Date: 20120515
  Transmission Date: 20120825
  Serious: Yes (Other)
  Sender: FDA-Public Use
  Company Number: PHEH2012US010229

PATIENT
  Sex: Female
  Weight: 142 kg

DRUGS (8)
  1. PULMOZYME [Concomitant]
  2. IMIPRAMINE HCL [Concomitant]
  3. TOBI [Suspect]
     Dosage: 300 MG, BID IN A CYCLE OF 28 DAYS ON AND OFF
     Dates: start: 20120101
  4. ZETIA [Concomitant]
  5. BENICAR [Concomitant]
  6. RESTORIL [Concomitant]
  7. TRICOR [Concomitant]
  8. EPLERENONE [Concomitant]

REACTIONS (7)
  - FATIGUE [None]
  - UPPER RESPIRATORY TRACT INFECTION [None]
  - FULL BLOOD COUNT DECREASED [None]
  - PYREXIA [None]
  - DEPRESSION [None]
  - FEELING ABNORMAL [None]
  - NAIL DISORDER [None]
